FAERS Safety Report 24564689 (Version 1)
Quarter: 2024Q4

REPORT INFORMATION
  Report Type: Spontaneous
  Country: US (occurrence: US)
  Receive Date: 20241030
  Receipt Date: 20241030
  Transmission Date: 20250114
  Serious: Yes (Life-Threatening, Hospitalization, Other)
  Sender: NOVARTIS
  Company Number: US-SANDOZ-SDZ2024US000945

PATIENT
  Age: 65 Year
  Sex: Male
  Weight: 81.1 kg

DRUGS (15)
  1. CYTARABINE [Suspect]
     Active Substance: CYTARABINE
     Indication: Acute myeloid leukaemia
     Dosage: 210 MG CYCLIC (EVERY DAY FOR DAYS 1-7 (100MG/M2))
     Route: 042
     Dates: start: 20230418, end: 20230425
  2. CYTARABINE [Suspect]
     Active Substance: CYTARABINE
     Dosage: 3940 MG CYCLIC (2000MG/M2) BID ON DAY 3)
     Route: 042
     Dates: start: 20230614, end: 20230614
  3. CYTARABINE [Suspect]
     Active Substance: CYTARABINE
     Dosage: 3940 MG CYCLIC (2000MG/M2) BID ON DAY 3)
     Route: 042
     Dates: start: 20230616, end: 20230616
  4. CYTARABINE [Suspect]
     Active Substance: CYTARABINE
     Dosage: 2955 MG CYCLIC (1500MG/M2) BID ON DAY 1)
     Route: 042
     Dates: start: 20230717, end: 20230717
  5. CYTARABINE [Suspect]
     Active Substance: CYTARABINE
     Dosage: 2955 MG CYCLIC (1500MG/M2) BID ON DAY 3)
     Route: 042
     Dates: start: 20230719, end: 20230719
  6. CYTARABINE [Suspect]
     Active Substance: CYTARABINE
     Dosage: 2955 MG CYCLIC (1500MG/M2) BID ON DAY 5)
     Route: 042
     Dates: start: 20230721, end: 20230721
  7. CYTARABINE [Suspect]
     Active Substance: CYTARABINE
     Dosage: 3940 MG, (2000MG/M2) BID, DAY 1
     Route: 042
     Dates: start: 20231206
  8. MIDOSTAURIN [Suspect]
     Active Substance: MIDOSTAURIN
     Indication: Acute myeloid leukaemia
     Dosage: 50 MG CYCLIC (50 MG, BID ON DAYS 8-21)
     Route: 048
     Dates: start: 20230425, end: 20230508
  9. MIDOSTAURIN [Suspect]
     Active Substance: MIDOSTAURIN
     Dosage: 50 MG CYCLIC (50 MG, BID ON DAYS 8-12)
     Route: 048
     Dates: start: 20230619, end: 20230623
  10. MIDOSTAURIN [Suspect]
     Active Substance: MIDOSTAURIN
     Dosage: 50 MG CYCLIC (50 MG, DAYS 8-21 BID)
     Route: 048
     Dates: start: 20230724, end: 20230729
  11. MIDOSTAURIN [Suspect]
     Active Substance: MIDOSTAURIN
     Dosage: 50 MG CYCLIC (50 MG, DAYS 8-21 BID)
     Route: 048
     Dates: start: 20230731, end: 20230805
  12. GEMTUZUMAB OZOGAMICIN [Suspect]
     Active Substance: GEMTUZUMAB OZOGAMICIN
     Indication: Acute myeloid leukaemia
     Dosage: 4.5 MG, CYCLIC (4.5 MG, DAY 1)
     Route: 042
     Dates: start: 20230418, end: 20230418
  13. GEMTUZUMAB OZOGAMICIN [Suspect]
     Active Substance: GEMTUZUMAB OZOGAMICIN
     Dosage: 4.5 MG CYCLIC (4.5 MG, DAY 4)
     Route: 042
     Dates: start: 20230421, end: 20230421
  14. GEMTUZUMAB OZOGAMICIN [Suspect]
     Active Substance: GEMTUZUMAB OZOGAMICIN
     Dosage: 4.5 MG CYCLIC (4.5 MG, DAY 7)
     Route: 042
     Dates: start: 20230424, end: 20230424
  15. GEMTUZUMAB OZOGAMICIN [Suspect]
     Active Substance: GEMTUZUMAB OZOGAMICIN
     Dosage: 4.5 MG CYCLIC  (4.5 MG, ONCE DAY 1)
     Route: 042
     Dates: start: 20230612

REACTIONS (2)
  - Diverticulitis [Recovered/Resolved]
  - Abscess intestinal [Recovered/Resolved]

NARRATIVE: CASE EVENT DATE: 20230729
